FAERS Safety Report 25085433 (Version 2)
Quarter: 2025Q1

REPORT INFORMATION
  Report Type: Report from Study
  Country: US (occurrence: US)
  Receive Date: 20250317
  Receipt Date: 20250325
  Transmission Date: 20250408
  Serious: No
  Sender: ACADIA PHARMACEUTICALS
  Company Number: US-ACADIA PHARMACEUTICALS INC.-ACA-2025-TRF-002917

PATIENT
  Age: 8 Year
  Sex: Female

DRUGS (16)
  1. DAYBUE [Suspect]
     Active Substance: TROFINETIDE
     Indication: Rett syndrome
     Dosage: 40 MILLILITER, BID
     Route: 065
     Dates: start: 20230517
  2. DAYBUE [Suspect]
     Active Substance: TROFINETIDE
     Dosage: 40 MILLILITER, BID
     Dates: start: 202308
  3. LOPERAMIDE HYDROCHLORIDE [Concomitant]
     Active Substance: LOPERAMIDE HYDROCHLORIDE
     Dosage: 1 MILLIGRAM, TID (1/2 TABLET CRUSHED AS NEEDED ORALLY UP TO 3 TIMES PER DAY)
     Route: 048
     Dates: start: 20230915
  4. FLONASE SENSIMIST ALLERGY RELIEF [Concomitant]
     Active Substance: FLUTICASONE FUROATE
     Dosage: 27.5 MCG/SPRAY SUSPENSION 1 SPRAY(S) INTRANASALLY ONCE A DAY, PRN
  5. MUCINEX [Concomitant]
     Active Substance: GUAIFENESIN
  6. ZYRTEC [Concomitant]
     Active Substance: CETIRIZINE HYDROCHLORIDE
  7. CETIRIZINE HYDROCHLORIDE [Concomitant]
     Active Substance: CETIRIZINE HYDROCHLORIDE
  8. VALTOCO [Concomitant]
     Active Substance: DIAZEPAM
     Route: 045
  9. VITAMINS [Concomitant]
     Active Substance: VITAMINS
     Dosage: 1 TABLET DAILY
  10. BIFIDOBACTERIUM LONGUM\LACTOBACILLUS ACIDOPHILUS\LACTOBACILLUS RHAMNOS [Suspect]
     Active Substance: BIFIDOBACTERIUM LONGUM\LACTOBACILLUS ACIDOPHILUS\LACTOBACILLUS RHAMNOSUS
     Indication: Diarrhoea
  11. OXYGEN [Concomitant]
     Active Substance: OXYGEN
  12. ATROVENT HFA [Concomitant]
     Active Substance: IPRATROPIUM BROMIDE
  13. CHOLECALCIFEROL [Concomitant]
     Active Substance: CHOLECALCIFEROL
  14. LOTRIMIN AF [CLOTRIMAZOLE] [Concomitant]
  15. PEDIALYTE [CALCIUM CHLORIDE;GLUCOSE;MAGNESIUM CHLORIDE;POTASSIUM CHLOR [Concomitant]
  16. OMEPRAZOLE [Concomitant]
     Active Substance: OMEPRAZOLE
     Dosage: 5 MILLILITER, QD (30 MINUTES BEFORE MORNING MEAL)
     Route: 048

REACTIONS (1)
  - Diarrhoea [Not Recovered/Not Resolved]

NARRATIVE: CASE EVENT DATE: 20250312
